FAERS Safety Report 8905674 (Version 1)
Quarter: 2012Q4

REPORT INFORMATION
  Report Type: 
  Country: FR (occurrence: FR)
  Receive Date: 20121113
  Receipt Date: 20121113
  Transmission Date: 20130627
  Serious: Yes (Hospitalization)
  Sender: FDA-Public Use
  Company Number: FR-B.I. PHARMACEUTICALS,INC./RIDGEFIELD-2012-FF-01576FF

PATIENT
  Age: 84 Year
  Sex: Female

DRUGS (2)
  1. PRADAXA [Suspect]
     Dosage: 220 mg
     Route: 048
     Dates: start: 201209, end: 20121002
  2. PLAVIX [Concomitant]
     Dosage: 75 mg
     Route: 048

REACTIONS (3)
  - Abdominal pain [Recovered/Resolved]
  - Renal failure [Recovered/Resolved]
  - International normalised ratio abnormal [Recovered/Resolved]
